FAERS Safety Report 7276906-5 (Version None)
Quarter: 2011Q1

REPORT INFORMATION
  Report Type: 
  Country: None (occurrence: None)
  Receive Date: 20110207
  Receipt Date: 20110121
  Transmission Date: 20110831
  Serious: No
  Sender: FDA-Public Use
  Company Number: US-BIOGENIDEC-2010BI044002

PATIENT
  Sex: Female

DRUGS (4)
  1. AVONEX [Concomitant]
     Indication: MULTIPLE SCLEROSIS
     Route: 030
     Dates: start: 19971110
  2. PROZAC [Concomitant]
     Indication: DEPRESSION
     Dates: start: 19880101
  3. TYSABRI [Suspect]
     Indication: MULTIPLE SCLEROSIS
     Route: 042
     Dates: start: 20061215
  4. CHOLESTEROL MEDICINE (NOS) [Concomitant]

REACTIONS (5)
  - ASTHENIA [None]
  - WEIGHT DECREASED [None]
  - CRYING [None]
  - HYPOPHAGIA [None]
  - CONFUSIONAL STATE [None]
